FAERS Safety Report 8349715-3 (Version None)
Quarter: 2012Q2

REPORT INFORMATION
  Report Type: 
  Country: None (occurrence: None)
  Receive Date: 20120510
  Receipt Date: 20120430
  Transmission Date: 20120825
  Serious: Yes (Other)
  Sender: FDA-Public Use
  Company Number: US-SANOFI-AVENTIS-2012SA030337

PATIENT
  Sex: Female

DRUGS (1)
  1. MULTAQ [Suspect]
     Route: 048
     Dates: start: 20120414

REACTIONS (1)
  - ATRIAL FIBRILLATION [None]
